FAERS Safety Report 6025770-0 (Version None)
Quarter: 2008Q4

REPORT INFORMATION
  Report Type: 
  Country: None (occurrence: None)
  Receive Date: 20081224
  Receipt Date: 20081218
  Transmission Date: 20090506
  Serious: Yes (Hospitalization, Other)
  Sender: FDA-Public Use
  Company Number: 2008S1000621

PATIENT
  Age: 15 Year
  Sex: Female

DRUGS (4)
  1. AZASAN [Suspect]
     Indication: CROHN'S DISEASE
     Dosage: 75 MG; QD; PO
     Route: 048
  2. INFLIXIMAB [Suspect]
     Indication: CROHN'S DISEASE
     Dosage: 5 MG/KG ; IV
     Route: 042
  3. PREDNISONE TAB [Concomitant]
  4. DEXAMETHASONE [Concomitant]

REACTIONS (20)
  - ABDOMINAL PAIN [None]
  - ACUTE RESPIRATORY DISTRESS SYNDROME [None]
  - BLOOD ALBUMIN DECREASED [None]
  - BLOOD TRIGLYCERIDES INCREASED [None]
  - BONE MARROW FAILURE [None]
  - CONDITION AGGRAVATED [None]
  - CYTOMEGALOVIRUS ANTIBODY POSITIVE [None]
  - DIARRHOEA [None]
  - EPSTEIN-BARR VIRUS INFECTION [None]
  - HEART RATE INCREASED [None]
  - HEPATITIS [None]
  - HISTIOCYTOSIS HAEMATOPHAGIC [None]
  - INFECTIOUS MONONUCLEOSIS [None]
  - INFLUENZA LIKE ILLNESS [None]
  - LUNG INFILTRATION [None]
  - LYMPHOHISTIOCYTOSIS [None]
  - PHARYNGEAL ERYTHEMA [None]
  - RASH MORBILLIFORM [None]
  - SERUM FERRITIN INCREASED [None]
  - TONSILLAR HYPERTROPHY [None]
